FAERS Safety Report 18584336 (Version 3)
Quarter: 2020Q4

REPORT INFORMATION
  Report Type: Report from Study
  Country: TW (occurrence: TW)
  Receive Date: 20201207
  Receipt Date: 20201210
  Transmission Date: 20210114
  Serious: Yes (Hospitalization)
  Sender: FDA-Public Use
  Company Number: TW-BIOGEN-2020BI00952424

PATIENT
  Age: 5 Year
  Sex: Male
  Weight: 14 kg

DRUGS (2)
  1. SPINRAZA [Suspect]
     Active Substance: NUSINERSEN
     Indication: SPINAL MUSCULAR ATROPHY
     Dosage: 4 LOADING DOSES ON DAY 0, 14, 28, AND 63
     Route: 037
     Dates: start: 20200914
  2. SPINRAZA [Suspect]
     Active Substance: NUSINERSEN
     Dosage: MAINTENANCE DOSE ADMINISTERED ONCE EVERY 4 MONTHS THEREAFTER
     Route: 037

REACTIONS (5)
  - Dyspnoea exertional [Unknown]
  - Pneumonia [Not Recovered/Not Resolved]
  - Tachycardia [Unknown]
  - Tonsillitis [Recovered/Resolved]
  - Dyspnoea [Unknown]

NARRATIVE: CASE EVENT DATE: 20201124
